FAERS Safety Report 13305757 (Version 3)
Quarter: 2020Q1

REPORT INFORMATION
  Report Type: Spontaneous
  Country: JP (occurrence: JP)
  Receive Date: 20170308
  Receipt Date: 20200206
  Transmission Date: 20200409
  Serious: Yes (Life-Threatening, Hospitalization, Other)
  Sender: FDA-Public Use
  Company Number: JP-ELI_LILLY_AND_COMPANY-JP201703002202

PATIENT
  Age: 76 Year
  Sex: Female
  Weight: 42 kg

DRUGS (3)
  1. PACLITAXEL. [Concomitant]
     Active Substance: PACLITAXEL
     Indication: GASTRIC CANCER RECURRENT
     Dosage: UNK
     Route: 042
     Dates: start: 20160614, end: 20170222
  2. CYRAMZA [Suspect]
     Active Substance: RAMUCIRUMAB
     Dosage: UNK
  3. CYRAMZA [Suspect]
     Active Substance: RAMUCIRUMAB
     Indication: GASTRIC CANCER RECURRENT
     Dosage: 102 MG
     Route: 042
     Dates: start: 20160614, end: 20170222

REACTIONS (2)
  - Malignant neoplasm progression [Not Recovered/Not Resolved]
  - Aortic dissection [Recovering/Resolving]

NARRATIVE: CASE EVENT DATE: 20170301
